FAERS Safety Report 21230608 (Version 1)
Quarter: 2022Q3

REPORT INFORMATION
  Report Type: Spontaneous
  Country: JP (occurrence: JP)
  Receive Date: 20220818
  Receipt Date: 20220818
  Transmission Date: 20221027
  Serious: Yes (Hospitalization, Other)
  Sender: FDA-Public Use
  Company Number: JP-ALVOGEN-2022-ALVOGEN-120758

PATIENT
  Age: 35 Year
  Sex: Female
  Weight: 56 kg

DRUGS (7)
  1. DEXAMETHASONE [Suspect]
     Active Substance: DEXAMETHASONE
     Indication: Prophylaxis of nausea and vomiting
     Route: 040
  2. FENTANYL [Suspect]
     Active Substance: FENTANYL
     Indication: Anaesthesia procedure
     Dosage: MCG/HR
  3. REMIFENTANIL [Suspect]
     Active Substance: REMIFENTANIL
     Indication: Anaesthesia procedure
     Dosage: 0.3 MICROGRAM/KG/MIN
  4. PROPOFOL [Suspect]
     Active Substance: PROPOFOL
     Indication: Anaesthesia procedure
  5. ROCURONIUM [Suspect]
     Active Substance: ROCURONIUM BROMIDE
     Indication: Anaesthesia procedure
  6. SEVOFLURANE [Suspect]
     Active Substance: SEVOFLURANE
     Indication: Anaesthesia procedure
  7. OXYGEN [Concomitant]
     Active Substance: OXYGEN
     Indication: Prophylaxis
     Dosage: 5 L/MIN

REACTIONS (4)
  - Hypertensive crisis [Recovered/Resolved]
  - Procedural hypertension [Recovered/Resolved]
  - Off label use [Unknown]
  - Blood pressure systolic increased [Recovered/Resolved]
